FAERS Safety Report 8397032-8 (Version None)
Quarter: 2012Q2

REPORT INFORMATION
  Report Type: 
  Country: None (occurrence: None)
  Receive Date: 20120530
  Receipt Date: 20120523
  Transmission Date: 20120825
  Serious: No
  Sender: FDA-Public Use
  Company Number: US-BAYER-2012-052741

PATIENT
  Age: 14 Year
  Sex: Male
  Weight: 48 kg

DRUGS (3)
  1. AMOXICILLIN [Concomitant]
     Indication: EAR INFECTION
  2. FLORASTOR [Concomitant]
     Indication: ABDOMINAL PAIN UPPER
  3. ALEVE (CAPLET) [Suspect]
     Indication: BACK PAIN
     Dosage: 5 DF, UNK
     Route: 048
     Dates: start: 20120522

REACTIONS (1)
  - NO ADVERSE EVENT [None]
